FAERS Safety Report 4302731-0 (Version None)
Quarter: 2004Q1

REPORT INFORMATION
  Report Type: 
  Country: None (occurrence: None)
  Receive Date: 20040224
  Receipt Date: 20040204
  Transmission Date: 20041129
  Serious: Yes (Other)
  Sender: FDA-Public Use
  Company Number: PHRM2004FR00775

PATIENT
  Age: 40 Year
  Sex: Female
  Weight: 54 kg

DRUGS (3)
  1. TRILEPTAL [Suspect]
     Indication: CONVULSION
     Dosage: 600 MG DAILY
     Route: 048
     Dates: start: 20030601, end: 20031215
  2. VOLTAREN [Suspect]
     Indication: SPONDYLITIS
     Dosage: 1 TO 2 DF PER DAY FOR 10 DAYS
     Route: 048
     Dates: end: 20031210
  3. NABUCOX [Suspect]
     Indication: SPONDYLITIS

REACTIONS (5)
  - DRUG INTERACTION [None]
  - INSOMNIA [None]
  - NEUROPATHY PERIPHERAL [None]
  - PRURITUS [None]
  - RASH PAPULAR [None]
